FAERS Safety Report 25976134 (Version 2)
Quarter: 2025Q4

REPORT INFORMATION
  Report Type: Report from Study
  Country: CO (occurrence: CO)
  Receive Date: 20251029
  Receipt Date: 20251120
  Transmission Date: 20260117
  Serious: Yes (Other)
  Sender: ABBVIE
  Company Number: CO-ABBVIE-6519845

PATIENT
  Age: 23 Year
  Sex: Male
  Weight: 104 kg

DRUGS (2)
  1. SKYRIZI [Suspect]
     Active Substance: RISANKIZUMAB-RZAA
     Indication: Psoriasis
     Dosage: SKYRIZI PREFILLED SYRINGE 150 ?MG
     Route: 058
     Dates: start: 20231102, end: 20250714
  2. SKYRIZI [Suspect]
     Active Substance: RISANKIZUMAB-RZAA
     Dosage: SKYRIZI PREFILLED SYRINGE 150 MG
     Route: 058
     Dates: start: 2025, end: 20250919

REACTIONS (5)
  - Tuberculosis [Unknown]
  - Influenza [Not Recovered/Not Resolved]
  - Arthralgia [Unknown]
  - Nasal congestion [Unknown]
  - Influenza [Recovered/Resolved]

NARRATIVE: CASE EVENT DATE: 20250101
